FAERS Safety Report 10880166 (Version 2)
Quarter: 2015Q1

REPORT INFORMATION
  Report Type: Spontaneous
  Country: US (occurrence: US)
  Receive Date: 20150302
  Receipt Date: 20150313
  Transmission Date: 20150721
  Serious: Yes (Death)
  Sender: FDA-Public Use
  Company Number: US-PFIZER INC-2015069867

PATIENT
  Age: 55 Year
  Sex: Female

DRUGS (1)
  1. SUTENT [Suspect]
     Active Substance: SUNITINIB MALATE
     Indication: THYROID CANCER METASTATIC
     Dosage: 25 MG, CYCLIC (EVERY DAY FOR 28 DAYS THEN 2 WEEKS OFF)
     Route: 048
     Dates: start: 20141128

REACTIONS (10)
  - Dyspnoea [Unknown]
  - Diarrhoea [Unknown]
  - Bowel movement irregularity [Unknown]
  - Disease progression [Fatal]
  - Thyroid cancer metastatic [Fatal]
  - Feeling abnormal [Unknown]
  - Dehydration [Unknown]
  - Fatigue [Unknown]
  - Product use issue [Unknown]
  - Hepatic enzyme increased [Unknown]

NARRATIVE: CASE EVENT DATE: 2015
